FAERS Safety Report 26121621 (Version 1)
Quarter: 2025Q4

REPORT INFORMATION
  Report Type: Spontaneous
  Country: US (occurrence: None)
  Receive Date: 20251204
  Receipt Date: 20251204
  Transmission Date: 20260119
  Serious: No
  Sender: INCYTE
  Company Number: US-INCYTE CORPORATION-2025IN013185

PATIENT

DRUGS (1)
  1. JAKAFI [Suspect]
     Active Substance: RUXOLITINIB
     Indication: Myelofibrosis
     Dosage: 5 MILLIGRAM, QD

REACTIONS (10)
  - Urine output decreased [Unknown]
  - Back pain [Unknown]
  - Tooth infection [Unknown]
  - Gingival pain [Unknown]
  - Blood glucose increased [Unknown]
  - Renal pain [Unknown]
  - Condition aggravated [Unknown]
  - Hypotension [Unknown]
  - Palpitations [Unknown]
  - Urinary tract infection [Unknown]
